FAERS Safety Report 11506181 (Version 1)
Quarter: 2015Q3

REPORT INFORMATION
  Report Type: Spontaneous
  Country: US (occurrence: US)
  Receive Date: 20150915
  Receipt Date: 20150915
  Transmission Date: 20151125
  Serious: No
  Sender: FDA-Public Use
  Company Number: US-ROCHE-764414

PATIENT
  Age: 54 Year
  Sex: Male

DRUGS (3)
  1. PEGASYS [Suspect]
     Active Substance: PEGINTERFERON ALFA-2A
     Indication: HEPATITIS C
     Route: 065
  2. RIBAVIRIN. [Suspect]
     Active Substance: RIBAVIRIN
     Indication: HEPATITIS C
     Dosage: FREQUENCY: ONE CAPSULE IN AM AND ONE IN PM
     Route: 065
  3. ALCOHOL. [Concomitant]
     Active Substance: ALCOHOL
     Route: 065

REACTIONS (4)
  - Nausea [Unknown]
  - Injection site erythema [Not Recovered/Not Resolved]
  - Headache [Unknown]
  - Drug administration error [Unknown]

NARRATIVE: CASE EVENT DATE: 20110225
